FAERS Safety Report 21064043 (Version 2)
Quarter: 2025Q2

REPORT INFORMATION
  Report Type: Spontaneous
  Country: US (occurrence: US)
  Receive Date: 20220711
  Receipt Date: 20250529
  Transmission Date: 20250716
  Serious: No
  Sender: CIPLA
  Company Number: US-CIPLA LTD.-2022US03025

PATIENT

DRUGS (2)
  1. ALBUTEROL [Suspect]
     Active Substance: ALBUTEROL
     Indication: Asthma
     Dates: end: 20220428
  2. ALBUTEROL [Suspect]
     Active Substance: ALBUTEROL
     Dates: end: 20220428

REACTIONS (3)
  - Device ineffective [Unknown]
  - Device malfunction [Unknown]
  - Device leakage [Unknown]
